FAERS Safety Report 6094535-6 (Version None)
Quarter: 2009Q1

REPORT INFORMATION
  Report Type: 
  Country: None (occurrence: None)
  Receive Date: 20090226
  Receipt Date: 20090218
  Transmission Date: 20090719
  Serious: Yes (Death, Hospitalization, Other)
  Sender: FDA-Public Use
  Company Number: US-ROXANE LABORATORIES, INC.-2009-RO-00166RO

PATIENT
  Age: 47 Year
  Sex: Female

DRUGS (12)
  1. CYCLOPHOSPHAMIDE [Suspect]
     Indication: BREAST CANCER
  2. PREDNISONE [Suspect]
     Indication: SKIN LESION
     Route: 048
  3. TAMOXIFEN CITRATE [Suspect]
  4. CITALOPRAM HYDROBROMIDE [Suspect]
  5. DIPHENHYDRAMINE HCL [Suspect]
     Indication: SKIN LESION
     Route: 048
  6. DOXORUBICIN HCL [Suspect]
     Indication: BREAST CANCER
  7. CYCLOBENZAPRINE HCL [Suspect]
  8. ESOMEPRAZOLE MAGNESIUM [Suspect]
  9. NITROFURANTOIN [Suspect]
  10. IBUPROFEN [Suspect]
  11. CYTARABINE [Suspect]
     Indication: BONE MARROW CONDITIONING REGIMEN
  12. IDARUBICIN HCL [Suspect]
     Indication: BONE MARROW CONDITIONING REGIMEN

REACTIONS (4)
  - COMPLICATIONS OF BONE MARROW TRANSPLANT [None]
  - DRUG INEFFECTIVE [None]
  - LEUKAEMIA CUTIS [None]
  - MYELOID LEUKAEMIA [None]
